FAERS Safety Report 4869613-7 (Version None)
Quarter: 2005Q4

REPORT INFORMATION
  Report Type: 
  Country: None (occurrence: None)
  Receive Date: 20051227
  Receipt Date: 20051214
  Transmission Date: 20060501
  Serious: Yes (Hospitalization)
  Sender: FDA-Public Use
  Company Number: HQWYE778030NOV05

PATIENT
  Age: 58 Year
  Sex: Male

DRUGS (5)
  1. RAPAMUNE [Suspect]
     Indication: PROPHYLAXIS AGAINST TRANSPLANT REJECTION
     Dosage: 8 MG 1 PER 1 DAY; 6MG 1X PER 1 DAY
     Route: 048
     Dates: start: 20051207, end: 20051201
  2. RAPAMUNE [Suspect]
     Indication: PROPHYLAXIS AGAINST TRANSPLANT REJECTION
     Dosage: 8 MG 1 PER 1 DAY; 6MG 1X PER 1 DAY
     Route: 048
     Dates: start: 20051111, end: 20051206
  3. DOXAZOSIN MESYLATE [Concomitant]
  4. AMLODIPINE [Concomitant]
  5. CLORAZEPATE (CLORAZEPATE DIPOTASSIUM) [Concomitant]

REACTIONS (6)
  - HAEMODIALYSIS [None]
  - KIDNEY TRANSPLANT REJECTION [None]
  - RENAL IMPAIRMENT [None]
  - RENAL INFARCT [None]
  - RENAL TUBULAR NECROSIS [None]
  - VASCULAR GRAFT COMPLICATION [None]
